FAERS Safety Report 12589325 (Version 1)
Quarter: 2016Q3

REPORT INFORMATION
  Report Type: Spontaneous
  Country: CA (occurrence: US)
  Receive Date: 20160725
  Receipt Date: 20160725
  Transmission Date: 20161109
  Serious: No
  Sender: FDA-Public Use
  Company Number: CA-JNJFOC-20160705065

PATIENT
  Sex: Male

DRUGS (2)
  1. MOTRIN [Suspect]
     Active Substance: IBUPROFEN
     Indication: BACK PAIN
     Route: 065
  2. MOTRIN [Suspect]
     Active Substance: IBUPROFEN
     Route: 065

REACTIONS (1)
  - Adverse reaction [Unknown]
